FAERS Safety Report 6821024-0 (Version None)
Quarter: 2010Q3

REPORT INFORMATION
  Report Type: 
  Country: None (occurrence: None)
  Receive Date: 20100707
  Receipt Date: 20071205
  Transmission Date: 20110219
  Serious: No
  Sender: FDA-Public Use
  Company Number: US-PFIZER INC-2007102897

PATIENT
  Sex: Female
  Weight: 81.818 kg

DRUGS (7)
  1. ZOLOFT [Suspect]
     Indication: PANIC ATTACK
     Dates: start: 19990101
  2. ZOLOFT [Suspect]
     Indication: ANXIETY
  3. KLONOPIN [Concomitant]
  4. TRICOR [Concomitant]
  5. HYDROCHLOROTHIAZIDE [Concomitant]
  6. LOVASTATIN [Concomitant]
  7. LORTAB [Concomitant]

REACTIONS (1)
  - RHEUMATOID ARTHRITIS [None]
